FAERS Safety Report 7031267-1 (Version None)
Quarter: 2010Q4

REPORT INFORMATION
  Report Type: 
  Country: None (occurrence: None)
  Receive Date: 20101006
  Receipt Date: 20101005
  Transmission Date: 20110411
  Serious: Yes (Disabling, Other)
  Sender: FDA-Public Use
  Company Number: A0885032A

PATIENT
  Age: 60 Year
  Sex: Male

DRUGS (10)
  1. PROMACTA [Suspect]
     Indication: IDIOPATHIC THROMBOCYTOPENIC PURPURA
     Dosage: 50MG PER DAY
     Route: 048
     Dates: start: 20090901
  2. LORAZEPAM [Concomitant]
  3. CELLCEPT [Concomitant]
  4. AMLODIPINE [Concomitant]
  5. FLUCONAZOLE [Concomitant]
  6. LOVASTATIN [Concomitant]
  7. OMEPRAZOLE [Concomitant]
  8. AZO-SULFAMETHOXAZOLE [Concomitant]
  9. TOPROL-XL [Concomitant]
  10. LORTAB [Concomitant]

REACTIONS (4)
  - BLINDNESS [None]
  - CATARACT [None]
  - VISION BLURRED [None]
  - VISUAL IMPAIRMENT [None]
